FAERS Safety Report 4895235-8 (Version None)
Quarter: 2006Q1

REPORT INFORMATION
  Report Type: 
  Country: None (occurrence: None)
  Receive Date: 20060130
  Receipt Date: 20060124
  Transmission Date: 20060701
  Serious: Yes (Other)
  Sender: FDA-Public Use
  Company Number: MX-GLAXOSMITHKLINE-A0590756A

PATIENT
  Age: 53 Year
  Sex: Male

DRUGS (1)
  1. AVANDIA [Suspect]
     Indication: DIABETIC MICROANGIOPATHY
     Route: 048
     Dates: start: 20050801, end: 20060101

REACTIONS (4)
  - ANGIOPATHY [None]
  - MACULOPATHY [None]
  - PHOTOCOAGULATION [None]
  - VISUAL ACUITY REDUCED [None]
